FAERS Safety Report 6108430-7 (Version None)
Quarter: 2009Q1

REPORT INFORMATION
  Report Type: 
  Country: None (occurrence: None)
  Receive Date: 20090309
  Receipt Date: 20090225
  Transmission Date: 20090719
  Serious: Yes (Other)
  Sender: FDA-Public Use
  Company Number: US-PFIZER INC-2009178661

PATIENT
  Age: 38 Year
  Sex: Male

DRUGS (1)
  1. GEODON [Suspect]

REACTIONS (1)
  - HYPERSENSITIVITY [None]
